FAERS Safety Report 9797676 (Version 1)
Quarter: 2014Q1

REPORT INFORMATION
  Report Type: Spontaneous
  Country: US (occurrence: US)
  Receive Date: 20140106
  Receipt Date: 20140106
  Transmission Date: 20141002
  Serious: No
  Sender: FDA-Public Use
  Company Number: US-PFIZER INC-2014002535

PATIENT
  Age: 48 Year
  Sex: Female
  Weight: 96.15 kg

DRUGS (9)
  1. LYRICA [Suspect]
     Indication: FIBROMYALGIA
     Dosage: UNK, 1X/DAY
     Dates: start: 20131230
  2. LYRICA [Suspect]
     Indication: INTERVERTEBRAL DISC DEGENERATION
  3. NORVASC [Concomitant]
     Indication: MUSCLE RELAXANT THERAPY
     Dosage: UNK
  4. NORVASC [Concomitant]
     Indication: MUSCLE SPASMS
  5. TRAZODONE [Concomitant]
     Indication: SLEEP DISORDER
     Dosage: UNK
  6. LISINOPRIL [Concomitant]
     Indication: HYPERTENSION
     Dosage: UNK
  7. MELOXICAM [Concomitant]
     Indication: INFLAMMATION
     Dosage: UNK
  8. CELEBREX [Concomitant]
     Indication: INFLAMMATION
     Dosage: UNK
  9. WELLBUTRIN [Concomitant]
     Indication: DEPRESSION
     Dosage: UNK

REACTIONS (5)
  - Off label use [Not Recovered/Not Resolved]
  - Neck pain [Not Recovered/Not Resolved]
  - Back pain [Not Recovered/Not Resolved]
  - Musculoskeletal pain [Not Recovered/Not Resolved]
  - Musculoskeletal chest pain [Not Recovered/Not Resolved]
